FAERS Safety Report 18267041 (Version 1)
Quarter: 2020Q3

REPORT INFORMATION
  Report Type: Spontaneous
  Country: US (occurrence: US)
  Receive Date: 20200915
  Receipt Date: 20200915
  Transmission Date: 20201103
  Serious: Yes (Hospitalization, Other)
  Sender: FDA-Public Use
  Company Number: US-COVIS PHARMA B.V.-2020COV00418

PATIENT
  Age: 76 Year
  Sex: Female
  Weight: 54.42 kg

DRUGS (3)
  1. VYNDAMAX [Suspect]
     Active Substance: TAFAMIDIS
     Indication: CARDIAC AMYLOIDOSIS
     Dosage: 61 MG, 1X/DAY
     Route: 048
     Dates: start: 202001, end: 20200718
  2. OMEPRAZOLE MAGNESIUM. [Suspect]
     Active Substance: OMEPRAZOLE MAGNESIUM
     Route: 048
  3. VYNDAMAX [Suspect]
     Active Substance: TAFAMIDIS
     Dosage: UNK
     Route: 048
     Dates: start: 20200727

REACTIONS (8)
  - Vomiting [Not Recovered/Not Resolved]
  - Hyponatraemia [Not Recovered/Not Resolved]
  - Cardiac failure [Unknown]
  - Acute kidney injury [Not Recovered/Not Resolved]
  - Diarrhoea [Not Recovered/Not Resolved]
  - Cardiorenal syndrome [Unknown]
  - Nausea [Not Recovered/Not Resolved]
  - Helicobacter infection [Unknown]

NARRATIVE: CASE EVENT DATE: 20200718
